FAERS Safety Report 24720756 (Version 4)
Quarter: 2025Q2

REPORT INFORMATION
  Report Type: Report from Study
  Country: US (occurrence: US)
  Receive Date: 20241211
  Receipt Date: 20250602
  Transmission Date: 20250716
  Serious: Yes (Other)
  Sender: NOVARTIS
  Company Number: US-002147023-NVSC2024US232734

PATIENT
  Sex: Male

DRUGS (1)
  1. KESIMPTA [Suspect]
     Active Substance: OFATUMUMAB
     Indication: Product used for unknown indication
     Route: 065
     Dates: start: 2024

REACTIONS (16)
  - Rheumatoid arthritis [Unknown]
  - Pain [Recovering/Resolving]
  - Bone pain [Recovering/Resolving]
  - Fatigue [Recovering/Resolving]
  - Lethargy [Recovering/Resolving]
  - Altered visual depth perception [Unknown]
  - Insomnia [Unknown]
  - Vision blurred [Unknown]
  - Hypoaesthesia [Unknown]
  - Papule [Unknown]
  - Pruritus [Unknown]
  - Haemorrhage [Unknown]
  - Swelling [Unknown]
  - Scar [Unknown]
  - Feeling abnormal [Unknown]
  - Therapeutic response shortened [Unknown]
